FAERS Safety Report 4682434-3 (Version None)
Quarter: 2005Q2

REPORT INFORMATION
  Report Type: 
  Country: None (occurrence: None)
  Receive Date: 20050602
  Receipt Date: 20050602
  Transmission Date: 20051028
  Serious: Yes (Hospitalization)
  Sender: FDA-Public Use
  Company Number: None

PATIENT
  Age: 4 Year
  Sex: Male
  Weight: 18.5975 kg

DRUGS (1)
  1. METHOTREXATE PRESERVATIVE FREE [Suspect]
     Indication: ACUTE LYMPHOCYTIC LEUKAEMIA
     Dosage: 12 MG IT
     Route: 037
     Dates: start: 20041201

REACTIONS (3)
  - ABASIA [None]
  - COORDINATION ABNORMAL [None]
  - LEUKOENCEPHALOPATHY [None]
